FAERS Safety Report 5724669-4 (Version None)
Quarter: 2008Q2

REPORT INFORMATION
  Report Type: 
  Country: None (occurrence: None)
  Receive Date: 20080430
  Receipt Date: 20080430
  Transmission Date: 20081010
  Serious: Yes (Life-Threatening, Other)
  Sender: FDA-Public Use
  Company Number: None

PATIENT
  Age: 85 Year
  Sex: Female
  Weight: 54.8852 kg

DRUGS (1)
  1. DIGITEK 0.125 BERTEK [Suspect]
     Indication: CARDIAC DISORDER
     Dosage: 1 TABLET, CRUSH, G-TUBE EVERY OTHER DAY OTHER
     Route: 050

REACTIONS (5)
  - BLOOD PRESSURE INCREASED [None]
  - DYSPNOEA [None]
  - ERYTHEMA [None]
  - INCREASED UPPER AIRWAY SECRETION [None]
  - OEDEMA PERIPHERAL [None]
